FAERS Safety Report 8837556 (Version 1)
Quarter: 2012Q4

REPORT INFORMATION
  Report Type: Report from Study
  Country: CA (occurrence: CA)
  Receive Date: 20121012
  Receipt Date: 20121012
  Transmission Date: 20130627
  Serious: Yes (Other)
  Sender: FDA-Public Use
  Company Number: CA-JNJFOC-20121002056

PATIENT
  Sex: Female
  Weight: 47 kg

DRUGS (5)
  1. REMICADE [Suspect]
     Indication: CROHN^S DISEASE
     Route: 042
     Dates: start: 200505
  2. PLAVIX [Concomitant]
     Route: 048
  3. SYNTHROID [Concomitant]
     Route: 048
  4. FOLIC ACID [Concomitant]
     Route: 048
  5. BUSCOPAN [Concomitant]
     Dosage: as necessary
     Route: 065

REACTIONS (3)
  - Ankylosing spondylitis [Not Recovered/Not Resolved]
  - Spinal disorder [Not Recovered/Not Resolved]
  - Systemic lupus erythematosus [Not Recovered/Not Resolved]
